FAERS Safety Report 22232269 (Version 1)
Quarter: 2023Q2

REPORT INFORMATION
  Report Type: Spontaneous
  Country: US (occurrence: None)
  Receive Date: 20230420
  Receipt Date: 20230420
  Transmission Date: 20230721
  Serious: Yes (Life-Threatening)
  Sender: FDA-Public Use
  Company Number: US-ROCHE-3049895

PATIENT
  Sex: Male
  Weight: 102.60 kg

DRUGS (2)
  1. ESBRIET [Suspect]
     Active Substance: PIRFENIDONE
     Indication: Idiopathic pulmonary fibrosis
     Dosage: 2 PILLS, THREE TIMES A DAY
     Route: 048
     Dates: start: 20220118
  2. ESBRIET [Suspect]
     Active Substance: PIRFENIDONE
     Indication: Interstitial lung disease

REACTIONS (5)
  - Malaise [Unknown]
  - Illness [Unknown]
  - Liver disorder [Unknown]
  - Fungal infection [Unknown]
  - Liver function test abnormal [Unknown]
